FAERS Safety Report 10192834 (Version 1)
Quarter: 2014Q2

REPORT INFORMATION
  Report Type: Spontaneous
  Country: DE (occurrence: DE)
  Receive Date: 20140523
  Receipt Date: 20140523
  Transmission Date: 20141212
  Serious: Yes (Death, Life-Threatening)
  Sender: FDA-Public Use
  Company Number: DE-ASTRAZENECA-2014SE34960

PATIENT
  Age: 37 Year
  Sex: Male
  Weight: 190 kg

DRUGS (8)
  1. SEROQUEL [Suspect]
     Route: 048
     Dates: start: 20140327, end: 20140327
  2. SEROQUEL [Interacting]
     Route: 048
     Dates: start: 20140328, end: 20140328
  3. CIATYL-Z ACUPHASE [Suspect]
     Route: 030
     Dates: start: 20140327, end: 20140327
  4. ROXITHROMYCIN [Interacting]
     Route: 048
     Dates: start: 20140327, end: 20140329
  5. ABILIFY [Concomitant]
     Route: 048
     Dates: end: 20140323
  6. ABILIFY [Concomitant]
     Route: 048
     Dates: start: 20140324, end: 20140329
  7. LORAZEPAM [Concomitant]
     Route: 048
     Dates: start: 20140325, end: 20140327
  8. LORAZEPAM [Concomitant]
     Route: 048
     Dates: start: 20140328, end: 20140329

REACTIONS (2)
  - Cardiac arrest [Fatal]
  - Drug interaction [Fatal]
